FAERS Safety Report 8135517-X (Version None)
Quarter: 2012Q1

REPORT INFORMATION
  Report Type: 
  Country: None (occurrence: None)
  Receive Date: 20120214
  Receipt Date: 20111025
  Transmission Date: 20120608
  Serious: Yes (Hospitalization, Other)
  Sender: FDA-Public Use
  Company Number: CA-JNJFOC-20110804624

PATIENT
  Sex: Female
  Weight: 71 kg

DRUGS (5)
  1. RANITIDINE [Concomitant]
     Indication: GASTROINTESTINAL DISORDER
     Route: 048
  2. PENTASA [Concomitant]
     Indication: COLITIS ULCERATIVE
     Route: 048
  3. REMICADE [Suspect]
     Indication: COLITIS ULCERATIVE
     Route: 042
     Dates: start: 20110613
  4. DILAUDID [Concomitant]
     Indication: ABDOMINAL PAIN
     Route: 048
  5. PREDNISONE TAB [Concomitant]
     Indication: COLITIS ULCERATIVE
     Route: 048

REACTIONS (3)
  - MATERNAL EXPOSURE DURING PREGNANCY [None]
  - COLITIS ULCERATIVE [None]
  - FOETAL DEATH [None]
